FAERS Safety Report 7311526-5 (Version None)
Quarter: 2011Q1

REPORT INFORMATION
  Report Type: 
  Country: None (occurrence: None)
  Receive Date: 20110224
  Receipt Date: 20101210
  Transmission Date: 20110831
  Serious: No
  Sender: FDA-Public Use
  Company Number: A0881476A

PATIENT
  Age: 61 Year
  Sex: Female

DRUGS (5)
  1. POLYGAM S/D [Concomitant]
     Route: 042
  2. AMBIEN [Concomitant]
  3. ARZERRA [Suspect]
     Dosage: 2000MG WEEKLY
     Route: 042
     Dates: start: 20100701
  4. STEROID [Suspect]
     Route: 042
  5. ACYCLOVIR [Concomitant]

REACTIONS (4)
  - DYSPNOEA [None]
  - NEUROPATHY PERIPHERAL [None]
  - PARAESTHESIA ORAL [None]
  - FATIGUE [None]
